FAERS Safety Report 16188898 (Version 1)
Quarter: 2019Q2

REPORT INFORMATION
  Report Type: Spontaneous
  Country: US (occurrence: US)
  Receive Date: 20190308
  Receipt Date: 20190308
  Transmission Date: 20190711
  Serious: No
  Sender: FDA-Public Use
  Company Number: None

PATIENT
  Age: 65 Year
  Sex: Female
  Weight: 86.18 kg

DRUGS (1)
  1. EDARBYCLOR [Suspect]
     Active Substance: AZILSARTAN KAMEDOXOMIL\CHLORTHALIDONE
     Indication: HYPERTENSION
     Dosage: ?          OTHER STRENGTH:40MG/12.5MG;QUANTITY:1 DF DOSAGE FORM;?
     Route: 048
     Dates: start: 20170407, end: 20181119

REACTIONS (10)
  - Pain in extremity [None]
  - Stasis dermatitis [None]
  - Swelling [None]
  - Pruritus [None]
  - Pain [None]
  - Ulcer [None]
  - Feeling hot [None]
  - Emotional distress [None]
  - Joint swelling [None]
  - Peripheral swelling [None]

NARRATIVE: CASE EVENT DATE: 20180513
